FAERS Safety Report 26076795 (Version 2)
Quarter: 2025Q4

REPORT INFORMATION
  Report Type: Spontaneous
  Country: EU (occurrence: EU)
  Receive Date: 20251121
  Receipt Date: 20251221
  Transmission Date: 20260118
  Serious: Yes (Hospitalization)
  Sender: MERCK SHARP & DOHME LLC
  Company Number: None

PATIENT
  Age: 79 Year
  Sex: Female
  Weight: 45 kg

DRUGS (8)
  1. ERTAPENEM [Suspect]
     Active Substance: ERTAPENEM
     Route: 042
     Dates: start: 20250829, end: 20250901
  2. ERTAPENEM SODIUM [Suspect]
     Active Substance: ERTAPENEM SODIUM
     Indication: Bacterial infection
     Dosage: 1XTGL 2G
     Route: 042
     Dates: start: 20250829, end: 20250901
  3. Xefo 8 mg powder and solvent for the preparation of an injection so... [Concomitant]
     Dosage: 4MG 1-1-1
     Route: 042
     Dates: end: 20250829
  4. ENOXAPARIN SODIUM [Concomitant]
     Active Substance: ENOXAPARIN SODIUM
     Dosage: 40MG 0-0-1
     Route: 058
  5. RISPERIDONE [Concomitant]
     Active Substance: RISPERIDONE
  6. AMLODIPINE [Concomitant]
     Active Substance: AMLODIPINE BESYLATE
     Dosage: TIME INTERVAL: 1 TOTAL: SINGLE ADMINISTRATION
     Dates: start: 20250829
  7. Pantoloc 40 mg - Dry vial [Concomitant]
     Route: 042
  8. DRONABINOL [Concomitant]
     Active Substance: DRONABINOL
     Dosage: 2 DROPS 3 TIMES A DAY

REACTIONS (7)
  - Disturbance in attention [Recovered/Resolved]
  - General physical health deterioration [Recovered/Resolved]
  - Speech disorder [Recovered/Resolved]
  - Delirium [Recovered/Resolved]
  - Somnolence [Recovered/Resolved]
  - Hallucination [Recovered/Resolved]
  - Disorientation [Recovered/Resolved]

NARRATIVE: CASE EVENT DATE: 20250831
